FAERS Safety Report 6481982-3 (Version None)
Quarter: 2009Q4

REPORT INFORMATION
  Report Type: 
  Country: None (occurrence: None)
  Receive Date: 20091208
  Receipt Date: 20090821
  Transmission Date: 20100525
  Serious: No
  Sender: FDA-Public Use
  Company Number: US-AMGEN-KDL341259

PATIENT
  Sex: Female
  Weight: 88 kg

DRUGS (15)
  1. ENBREL [Suspect]
     Indication: PSORIATIC ARTHROPATHY
     Route: 058
     Dates: start: 20071005
  2. ENBREL [Suspect]
     Indication: PSORIASIS
  3. DIAZEPAM [Concomitant]
  4. LYRICA [Concomitant]
  5. CATAFLAM [Concomitant]
  6. DIHYDROERGOTAMINE [Concomitant]
  7. PHENERGAN HCL [Concomitant]
  8. CELEXA [Concomitant]
  9. PROTONIX [Concomitant]
  10. ASACOL [Concomitant]
  11. ASPIRIN [Concomitant]
  12. NEXIUM [Concomitant]
  13. DICLOFENAC [Concomitant]
  14. WELLBUTRIN [Concomitant]
  15. NEURONTIN [Concomitant]

REACTIONS (2)
  - PSORIASIS [None]
  - PSORIATIC ARTHROPATHY [None]
